FAERS Safety Report 20973034 (Version 2)
Quarter: 2022Q4

REPORT INFORMATION
  Report Type: Spontaneous
  Country: CA (occurrence: CA)
  Receive Date: 20220617
  Receipt Date: 20221214
  Transmission Date: 20230113
  Serious: Yes (Other)
  Sender: FDA-Public Use
  Company Number: CA-SAMSUNG BIOEPIS-SB-2020-31860

PATIENT
  Age: 67 Year
  Sex: Male
  Weight: 71 kg

DRUGS (5)
  1. INFLIXIMAB [Suspect]
     Active Substance: INFLIXIMAB
     Indication: Crohn^s disease
     Route: 042
  2. ACETAMINOPHEN [Concomitant]
     Active Substance: ACETAMINOPHEN
     Indication: Headache
     Dosage: UNKNOWN
     Route: 065
  3. LACTOBACILLUS ACIDOPHILUS;LACTOBACI LLUS RHAMNOSUS;STREPTOCOCCUS THERM [Concomitant]
     Indication: Product used for unknown indication
     Dosage: UNKNOWN
     Route: 065
  4. PANTOPRAZOLE SODIUM [Concomitant]
     Active Substance: PANTOPRAZOLE SODIUM
     Indication: Product used for unknown indication
     Dosage: UNKNOWN
     Route: 065
  5. AMLODIPINE\TELMISARTAN [Concomitant]
     Active Substance: AMLODIPINE\TELMISARTAN
     Indication: Hypertension
     Route: 065

REACTIONS (12)
  - Exostosis [Unknown]
  - Fatigue [Unknown]
  - Insomnia [Unknown]
  - Pain in extremity [Unknown]
  - Subcutaneous abscess [Unknown]
  - COVID-19 [Unknown]
  - Malaise [Unknown]
  - Pyrexia [Unknown]
  - Weight decreased [Unknown]
  - Therapeutic response shortened [Unknown]
  - Intentional product use issue [Unknown]
  - Off label use [Unknown]
